FAERS Safety Report 23112236 (Version 1)
Quarter: 2023Q4

REPORT INFORMATION
  Report Type: Report from Study
  Country: JP (occurrence: JP)
  Receive Date: 20231026
  Receipt Date: 20231026
  Transmission Date: 20240109
  Serious: Yes (Other)
  Sender: FDA-Public Use
  Company Number: JP-TAKEDA-2023TJP013723

PATIENT
  Age: 68 Year
  Sex: Male
  Weight: 63 kg

DRUGS (3)
  1. PANITUMUMAB [Suspect]
     Active Substance: PANITUMUMAB
     Indication: Rectal adenocarcinoma
     Dosage: 378 MILLIGRAM, Q2WK
     Route: 065
     Dates: start: 20201208, end: 20210216
  2. IRINOTECAN [Suspect]
     Active Substance: IRINOTECAN
     Indication: Rectal adenocarcinoma
     Dosage: 174 MILLIGRAM, Q2WEEKS
     Route: 065
     Dates: start: 20201208, end: 20201208
  3. IRINOTECAN [Suspect]
     Active Substance: IRINOTECAN
     Dosage: 132 MILLIGRAM, Q2WEEKS
     Route: 065
     Dates: start: 20210105, end: 20210216

REACTIONS (13)
  - Neutrophil count decreased [Unknown]
  - Peripheral sensory neuropathy [Not Recovered/Not Resolved]
  - Aspartate aminotransferase increased [Unknown]
  - Alanine aminotransferase increased [Unknown]
  - Blood alkaline phosphatase increased [Not Recovered/Not Resolved]
  - Blood lactate dehydrogenase increased [Not Recovered/Not Resolved]
  - Constipation [Unknown]
  - Diarrhoea [Unknown]
  - Stomatitis [Recovered/Resolved]
  - Palmar-plantar erythrodysaesthesia syndrome [Unknown]
  - Dry skin [Recovering/Resolving]
  - Dermatitis acneiform [Not Recovered/Not Resolved]
  - Paronychia [Unknown]
